FAERS Safety Report 12935357 (Version 1)
Quarter: 2016Q4

REPORT INFORMATION
  Report Type: Spontaneous
  Country: US (occurrence: US)
  Receive Date: 20161114
  Receipt Date: 20161114
  Transmission Date: 20170207
  Serious: No
  Sender: FDA-Public Use
  Company Number: US-JAZZ-2016-US-018585

PATIENT
  Sex: Male

DRUGS (27)
  1. LYRICA [Concomitant]
     Active Substance: PREGABALIN
  2. CLONAZEPAM. [Concomitant]
     Active Substance: CLONAZEPAM
  3. FENTANYL. [Concomitant]
     Active Substance: FENTANYL
  4. TRICOR                             /00090101/ [Concomitant]
     Active Substance: ADENOSINE
  5. SERTRALINE HCL [Concomitant]
     Active Substance: SERTRALINE HYDROCHLORIDE
  6. TAMSULOSIN HCL [Concomitant]
     Active Substance: TAMSULOSIN
  7. LISINOPRIL + HIDROCLOROTIAZIDA [Concomitant]
     Active Substance: HYDROCHLOROTHIAZIDE\LISINOPRIL
  8. LOVASTATIN. [Concomitant]
     Active Substance: LOVASTATIN
  9. PERCOCET                           /00446701/ [Concomitant]
     Active Substance: ACETAMINOPHEN\OXYCODONE HYDROCHLORIDE\OXYCODONE TEREPHTHALATE
  10. DEPAKOTE [Concomitant]
     Active Substance: DIVALPROEX SODIUM
  11. VICODIN [Concomitant]
     Active Substance: ACETAMINOPHEN\HYDROCODONE BITARTRATE
  12. ALLOPURINOL. [Concomitant]
     Active Substance: ALLOPURINOL
  13. PROVIGIL [Concomitant]
     Active Substance: MODAFINIL
  14. SIMVASTATIN. [Concomitant]
     Active Substance: SIMVASTATIN
  15. XYREM [Suspect]
     Active Substance: SODIUM OXYBATE
     Indication: NARCOLEPSY
     Dosage: 2.25 G, BID
     Route: 048
     Dates: start: 201012, end: 201012
  16. GEMFIBROZIL. [Concomitant]
     Active Substance: GEMFIBROZIL
  17. TRAMADOL HCL [Concomitant]
     Active Substance: TRAMADOL HYDROCHLORIDE
  18. VIAGRA [Concomitant]
     Active Substance: SILDENAFIL CITRATE
  19. PHENTERMINE. [Concomitant]
     Active Substance: PHENTERMINE
  20. XYREM [Suspect]
     Active Substance: SODIUM OXYBATE
     Dosage: DOSE ADJUSTMENTS
     Route: 048
     Dates: start: 201012, end: 201502
  21. GABAPENTIN. [Concomitant]
     Active Substance: GABAPENTIN
  22. FLUOXETINE [Concomitant]
     Active Substance: FLUOXETINE HYDROCHLORIDE
  23. ASPIRIN                            /00002701/ [Concomitant]
     Active Substance: ASPIRIN
  24. LISINOPRIL. [Concomitant]
     Active Substance: LISINOPRIL
  25. XYREM [Suspect]
     Active Substance: SODIUM OXYBATE
     Dosage: 5 G, BID
     Route: 048
     Dates: start: 201502
  26. ATENOLOL. [Concomitant]
     Active Substance: ATENOLOL
  27. MOTRIN IB [Concomitant]
     Active Substance: IBUPROFEN

REACTIONS (1)
  - Depression [Unknown]

NARRATIVE: CASE EVENT DATE: 2013
